FAERS Safety Report 24114101 (Version 1)
Quarter: 2024Q3

REPORT INFORMATION
  Report Type: Spontaneous
  Country: US (occurrence: US)
  Receive Date: 20240720
  Receipt Date: 20240720
  Transmission Date: 20241016
  Serious: No
  Sender: UROGEN PHARMA
  Company Number: US-UROGEN PHARMA LTD.-2024-UGN-000070

PATIENT

DRUGS (3)
  1. JELMYTO [Suspect]
     Active Substance: MITOMYCIN
     Indication: Transitional cell cancer of the renal pelvis and ureter
     Dosage: 40 MILLIGRAM (INSTILLATION)
     Dates: start: 20240507, end: 20240507
  2. JELMYTO [Suspect]
     Active Substance: MITOMYCIN
     Dosage: 40 MILLIGRAM (INSTILLATION)
     Dates: start: 20240514, end: 20240514
  3. JELMYTO [Suspect]
     Active Substance: MITOMYCIN
     Dosage: 40 MILLIGRAM (INSTILLATION)
     Dates: start: 20240528, end: 20240528

REACTIONS (1)
  - Administration site rash [Recovered/Resolved]

NARRATIVE: CASE EVENT DATE: 20240501
